FAERS Safety Report 10265846 (Version 1)
Quarter: 2014Q2

REPORT INFORMATION
  Report Type: Spontaneous
  Country: US (occurrence: US)
  Receive Date: 20140627
  Receipt Date: 20140627
  Transmission Date: 20141212
  Serious: Yes (Hospitalization)
  Sender: FDA-Public Use
  Company Number: US-GLAXOSMITHKLINE-B1008543A

PATIENT
  Age: 69 Year
  Sex: Male

DRUGS (2)
  1. PROPAFENONE [Suspect]
     Indication: ATRIAL FIBRILLATION
     Dosage: 325MG TWICE PER DAY
     Route: 065
  2. MIRTAZAPINE [Suspect]
     Indication: INSOMNIA
     Route: 065

REACTIONS (13)
  - Neurotoxicity [Recovered/Resolved]
  - Cardiotoxicity [Recovered/Resolved]
  - Drug interaction [Recovered/Resolved]
  - Convulsion [Unknown]
  - Hypotension [Unknown]
  - Sinus bradycardia [Unknown]
  - Electrocardiogram QRS complex prolonged [Unknown]
  - Electrocardiogram QT prolonged [Unknown]
  - Bundle branch block right [Unknown]
  - Toxicity to various agents [Unknown]
  - Bradycardia [Unknown]
  - Atrial fibrillation [Unknown]
  - Encephalopathy [Unknown]
